FAERS Safety Report 4660822-9 (Version None)
Quarter: 2005Q2

REPORT INFORMATION
  Report Type: 
  Country: None (occurrence: None)
  Receive Date: 20050511
  Receipt Date: 20050503
  Transmission Date: 20051028
  Serious: Yes (Death, Other)
  Sender: FDA-Public Use
  Company Number: USA-2005-0020137

PATIENT
  Age: 48 Year
  Sex: Male

DRUGS (2)
  1. OXYCODONE HCL [Suspect]
     Dosage: MG
  2. COCAINE (COCAINE) [Suspect]

REACTIONS (3)
  - COMPLETED SUICIDE [None]
  - MURDER [None]
  - OVERDOSE [None]
